FAERS Safety Report 5080614-9 (Version None)
Quarter: 2006Q3

REPORT INFORMATION
  Report Type: 
  Country: None (occurrence: None)
  Receive Date: 20060815
  Receipt Date: 20060802
  Transmission Date: 20061208
  Serious: Yes (Death)
  Sender: FDA-Public Use
  Company Number: 456527

PATIENT
  Age: 59 Year
  Sex: Female
  Weight: 67 kg

DRUGS (25)
  1. ARTIST [Suspect]
     Indication: HYPERTENSION
     Route: 048
     Dates: start: 20051220
  2. ATARAX [Concomitant]
     Dates: start: 20051008, end: 20051008
  3. UNKNOWN NAME [Concomitant]
     Dates: start: 20051008, end: 20051008
  4. NORVASC [Concomitant]
     Dates: start: 20051009, end: 20051010
  5. CARDENALIN [Concomitant]
     Dates: start: 20051011, end: 20060323
  6. FOSAMAX [Concomitant]
     Dates: start: 20051012, end: 20060322
  7. ALFAROL [Concomitant]
     Dates: start: 20051012, end: 20060322
  8. FLURBIPROFEN [Concomitant]
     Dates: start: 20051024, end: 20060228
  9. INFLUENZA VACCINE [Concomitant]
     Dates: start: 20051107, end: 20051107
  10. LIPIDIL [Concomitant]
     Dates: start: 20060207, end: 20060322
  11. GLAKAY [Concomitant]
     Dates: start: 20060207, end: 20060322
  12. OSTEN [Concomitant]
     Dates: start: 20060207, end: 20060322
  13. BLOPRESS [Concomitant]
     Dates: start: 20060301, end: 20060322
  14. HALOPERIDOL [Concomitant]
  15. ARTANE [Concomitant]
  16. LENDORMIN [Concomitant]
  17. IMPROMEN [Concomitant]
  18. VEGETAMIN [Concomitant]
  19. FLURBIPROFEN [Concomitant]
  20. RINGER'S [Concomitant]
     Dosage: 1000ML PER DAY
     Dates: start: 20060322
  21. ALBUMIN [Concomitant]
     Dosage: 250ML PER DAY
     Dates: start: 20060322
  22. MAINTENANCE FLUID [Concomitant]
     Dosage: 1000ML PER DAY
     Dates: start: 20060322
  23. DOPAMINE [Concomitant]
     Route: 050
     Dates: start: 20060322
  24. SALINE [Concomitant]
     Dates: start: 20060322
  25. BICARBONATE [Concomitant]
     Route: 042
     Dates: start: 20060322

REACTIONS (21)
  - AGONAL DEATH STRUGGLE [None]
  - ALANINE AMINOTRANSFERASE INCREASED [None]
  - ASPARTATE AMINOTRANSFERASE INCREASED [None]
  - BLOOD CHLORIDE DECREASED [None]
  - BLOOD CREATININE INCREASED [None]
  - BLOOD GLUCOSE INCREASED [None]
  - BLOOD KETONE BODY [None]
  - BLOOD POTASSIUM INCREASED [None]
  - BLOOD SODIUM DECREASED [None]
  - BLOOD UREA INCREASED [None]
  - BODY TEMPERATURE INCREASED [None]
  - CARDIAC ARREST [None]
  - CYANOSIS [None]
  - DIABETIC KETOACIDOSIS [None]
  - FEELING ABNORMAL [None]
  - FEELING COLD [None]
  - HAEMATEMESIS [None]
  - HEART RATE INCREASED [None]
  - HYPOTENSION [None]
  - OXYGEN SATURATION DECREASED [None]
  - RENAL FAILURE ACUTE [None]
